FAERS Safety Report 18286375 (Version 2)
Quarter: 2021Q3

REPORT INFORMATION
  Report Type: Report from Study
  Country: DE (occurrence: DE)
  Receive Date: 20200920
  Receipt Date: 20210708
  Transmission Date: 20211014
  Serious: Yes (Other)
  Sender: FDA-Public Use
  Company Number: PHHY2018DE027315

PATIENT
  Age: 25 Year
  Sex: Male

DRUGS (3)
  1. COSENTYX [Suspect]
     Active Substance: SECUKINUMAB
     Dosage: 150 MG, UNKNOWN
     Route: 065
     Dates: start: 20180510
  2. COSENTYX [Suspect]
     Active Substance: SECUKINUMAB
     Dosage: 300 MG, UNKNOWN
     Route: 065
     Dates: start: 20170102, end: 20180509
  3. COSENTYX [Suspect]
     Active Substance: SECUKINUMAB
     Indication: PSORIASIS
     Dosage: 300 MG, UNKNOWN
     Route: 065
     Dates: start: 20161212, end: 20170101

REACTIONS (5)
  - Respiratory tract infection [Recovered/Resolved]
  - Pilonidal cyst [Recovered/Resolved]
  - Folliculitis [Recovered/Resolved]
  - Drug ineffective [Recovered/Resolved]
  - Body tinea [Recovered/Resolved]

NARRATIVE: CASE EVENT DATE: 20180101
